FAERS Safety Report 24794552 (Version 1)
Quarter: 2024Q4

REPORT INFORMATION
  Report Type: Spontaneous
  Country: IT (occurrence: IT)
  Receive Date: 20241231
  Receipt Date: 20241231
  Transmission Date: 20250114
  Serious: Yes (Other)
  Sender: ELI LILLY AND COMPANY
  Company Number: IT-TEVA-VS-3277447

PATIENT
  Age: 62 Year
  Sex: Female

DRUGS (1)
  1. TERIPARATIDE [Suspect]
     Active Substance: TERIPARATIDE
     Indication: Product used for unknown indication
     Dosage: UNK UNK, DAILY
     Route: 065

REACTIONS (8)
  - Back pain [Unknown]
  - Chest pain [Unknown]
  - Tachycardia [Unknown]
  - Abdominal pain upper [Unknown]
  - Burning sensation [Unknown]
  - Feeling hot [Unknown]
  - Erythema [Unknown]
  - Feeling abnormal [Unknown]
